FAERS Safety Report 5769910-7 (Version None)
Quarter: 2008Q2

REPORT INFORMATION
  Report Type: 
  Country: None (occurrence: None)
  Receive Date: 20080613
  Receipt Date: 20080413
  Transmission Date: 20081010
  Serious: No
  Sender: FDA-Public Use
  Company Number: US-ABBOTT-08P-163-0447106-00

PATIENT
  Sex: Female
  Weight: 65.83 kg

DRUGS (3)
  1. HUMIRA [Suspect]
     Indication: RHEUMATOID ARTHRITIS
     Route: 058
     Dates: start: 20070101
  2. HUMIRA [Suspect]
     Dosage: PRE-FILLED SYRINGE
     Route: 058
     Dates: start: 20050101
  3. HUMIRA [Suspect]
     Route: 058
     Dates: start: 20060801, end: 20070101

REACTIONS (8)
  - ARTHRALGIA [None]
  - CONTUSION [None]
  - MUSCULOSKELETAL STIFFNESS [None]
  - OEDEMA PERIPHERAL [None]
  - OSTEOARTHRITIS [None]
  - PROCEDURAL COMPLICATION [None]
  - SKIN ATROPHY [None]
  - SYNOVITIS [None]
